FAERS Safety Report 16024492 (Version 2)
Quarter: 2019Q1

REPORT INFORMATION
  Report Type: Report from Study
  Country: US (occurrence: US)
  Receive Date: 20190301
  Receipt Date: 20190318
  Transmission Date: 20190418
  Serious: Yes (Hospitalization, Other)
  Sender: FDA-Public Use
  Company Number: US-ACTELION-A-NJ2019-186166

PATIENT
  Age: 56 Year
  Sex: Male

DRUGS (1)
  1. OPSUMIT [Suspect]
     Active Substance: MACITENTAN
     Indication: PULMONARY ARTERIAL HYPERTENSION
     Dosage: 10 MG, QD
     Route: 048
     Dates: start: 20181220, end: 20190219

REACTIONS (4)
  - Transplant evaluation [Recovered/Resolved]
  - Pulmonary hypertension [Unknown]
  - Malnutrition [Unknown]
  - Lung transplant [Recovered/Resolved]

NARRATIVE: CASE EVENT DATE: 20181222
